FAERS Safety Report 7217122-2 (Version None)
Quarter: 2011Q1

REPORT INFORMATION
  Report Type: 
  Country: None (occurrence: None)
  Receive Date: 20110110
  Receipt Date: 20110106
  Transmission Date: 20110831
  Serious: Yes (Death)
  Sender: FDA-Public Use
  Company Number: FR-SANOFI-AVENTIS-2011SA000838

PATIENT
  Age: 63 Year
  Sex: Male

DRUGS (6)
  1. PERFALGAN [Concomitant]
     Route: 042
     Dates: start: 20101121, end: 20101124
  2. TOPALGIC LP [Concomitant]
     Route: 048
     Dates: start: 20101121, end: 20101122
  3. LOVENOX [Suspect]
     Route: 058
     Dates: end: 20101121
  4. HEPARIN SODIUM [Suspect]
     Route: 042
     Dates: start: 20101121, end: 20101202
  5. ACUPAN [Concomitant]
     Route: 042
     Dates: start: 20101121, end: 20101122
  6. MORPHINE [Concomitant]
     Route: 042
     Dates: start: 20101121, end: 20101123

REACTIONS (2)
  - THROMBOSIS [None]
  - HEPARIN-INDUCED THROMBOCYTOPENIA [None]
